FAERS Safety Report 8818969 (Version 3)
Quarter: 2013Q1

REPORT INFORMATION
  Report Type: Report from Study
  Country: JP (occurrence: JP)
  Receive Date: 20121001
  Receipt Date: 20130103
  Transmission Date: 20140127
  Serious: Yes (Hospitalization)
  Sender: FDA-Public Use
  Company Number: PHHY2012JP080148

PATIENT
  Age: 56 Year
  Sex: Male
  Weight: 58 kg

DRUGS (24)
  1. LEPONEX / CLOZARIL [Suspect]
     Indication: SCHIZOPHRENIA
     Dosage: 12.5 MG, DAILY
     Route: 048
     Dates: start: 20120823, end: 20120823
  2. LEPONEX / CLOZARIL [Suspect]
     Dosage: 25 MG, DAILY
     Route: 048
     Dates: start: 20120824, end: 20120826
  3. LEPONEX / CLOZARIL [Suspect]
     Dosage: 50 MG, DAILY
     Route: 048
     Dates: start: 20120827, end: 20120829
  4. LEPONEX / CLOZARIL [Suspect]
     Dosage: 75 MG, DAILY
     Route: 048
     Dates: start: 20120830, end: 20120831
  5. LEPONEX / CLOZARIL [Suspect]
     Dosage: 100 MG, DAILY
     Route: 048
     Dates: start: 20120901, end: 20120902
  6. LEPONEX / CLOZARIL [Suspect]
     Dosage: 125 MG, DAILY
     Route: 048
     Dates: start: 20120903, end: 20120907
  7. LEPONEX / CLOZARIL [Suspect]
     Dosage: 12.5 MG, DAILY
     Route: 048
     Dates: start: 20121004, end: 20121004
  8. LEPONEX / CLOZARIL [Suspect]
     Dosage: 25 MG, DAILY
     Route: 048
     Dates: start: 20121005, end: 20121007
  9. LEPONEX / CLOZARIL [Suspect]
     Dosage: 50 MG, UNK
     Route: 048
     Dates: start: 20121008, end: 20121009
  10. SILECE [Concomitant]
     Indication: SCHIZOPHRENIA
     Dosage: 2 MG, UNK
     Route: 048
     Dates: start: 20120830, end: 20120909
  11. FAMOTIDINE [Concomitant]
     Dosage: 5 MG, UNK
     Route: 048
     Dates: end: 20120924
  12. LIMAS [Concomitant]
     Dosage: 600 MG, UNK
  13. BENZALIN [Concomitant]
     Indication: SCHIZOPHRENIA
     Dosage: 5 MG, UNK
     Route: 048
     Dates: start: 20100218
  14. BENZALIN [Concomitant]
     Dosage: 10 MG, UNK
     Route: 048
  15. RISPERIDONE [Concomitant]
     Dosage: 9 MG, UNK
     Route: 048
  16. RISPERIDONE [Concomitant]
     Dosage: 6 MG, UNK
     Route: 048
  17. BIOFERMIN [Concomitant]
     Dosage: 3 BQ, UNK
  18. SENNOSIDE [Concomitant]
     Dosage: 24 MG, UNK
     Route: 048
     Dates: start: 20120622, end: 20120909
  19. WYPAX [Concomitant]
     Dosage: 3 MG, UNK
  20. WYPAX [Concomitant]
     Dosage: 1.5 MG, UNK
  21. AMLODIN [Concomitant]
     Dosage: 2.5 MG, UNK
     Dates: start: 20100305, end: 20120909
  22. REBAMIPIDE [Concomitant]
     Dosage: 300 MG, UNK
     Dates: end: 20120924
  23. SELBEX [Concomitant]
     Dosage: 0.5 MG, UNK
     Dates: start: 20120905, end: 20120905
  24. MIYA-BM [Concomitant]
     Dosage: 3 DF, UNK
     Dates: end: 20120924

REACTIONS (7)
  - Urinary tract infection pseudomonal [Recovering/Resolving]
  - Pyrexia [Recovering/Resolving]
  - Sepsis [Recovering/Resolving]
  - Nephritis [Recovering/Resolving]
  - White blood cell count increased [Unknown]
  - Neutrophil count increased [Unknown]
  - White blood cell count decreased [Unknown]
